FAERS Safety Report 10727992 (Version 2)
Quarter: 2015Q4

REPORT INFORMATION
  Report Type: Spontaneous
  Country: JP (occurrence: JP)
  Receive Date: 20150121
  Receipt Date: 20151216
  Transmission Date: 20160304
  Serious: Yes (Death, Other)
  Sender: FDA-Public Use
  Company Number: JP-B.I. PHARMACEUTICALS,INC./RIDGEFIELD-2015-BI-02786NB

PATIENT
  Age: 43 Year
  Sex: Female

DRUGS (2)
  1. GILOTRIF [Suspect]
     Active Substance: AFATINIB
     Dosage: 30 MG
     Route: 048
     Dates: start: 20140826, end: 20150119
  2. GILOTRIF [Suspect]
     Active Substance: AFATINIB
     Indication: NON-SMALL CELL LUNG CANCER
     Dosage: 40 MG
     Route: 048

REACTIONS (3)
  - Cutaneous symptom [Unknown]
  - Meningitis [Unknown]
  - Malignant neoplasm progression [Fatal]
